FAERS Safety Report 6867601-2 (Version None)
Quarter: 2010Q3

REPORT INFORMATION
  Report Type: 
  Country: None (occurrence: None)
  Receive Date: 20100722
  Receipt Date: 20090707
  Transmission Date: 20110219
  Serious: No
  Sender: FDA-Public Use
  Company Number: US-BAUSCH-2009BL003371

PATIENT
  Age: 63 Year
  Sex: Female

DRUGS (5)
  1. OPCON-A [Suspect]
     Indication: EYE PRURITUS
     Route: 047
     Dates: start: 20090706, end: 20090706
  2. ADVANCED EYE RELIEF/DRY EYE/ENVIRONMENTAL LUBRICANT EYE DROPS [Concomitant]
     Indication: DRY EYE
     Route: 047
  3. ADVANCED EYE RELIEF/DRY EYE/REJUVENATION LUBRICANT EYE DROPS [Concomitant]
     Indication: DRY EYE
     Route: 047
  4. ADVANCED EYE RELIEF/NIGHT TIME LUBRICANT EYE OINTMENT PF [Concomitant]
     Indication: DRY EYE
     Route: 047
  5. BION TEARS [Concomitant]
     Indication: PRODUCT USED FOR UNKNOWN INDICATION
     Route: 047

REACTIONS (9)
  - DYSPEPSIA [None]
  - HEADACHE [None]
  - MIOSIS [None]
  - MYDRIASIS [None]
  - NAUSEA [None]
  - PHOTOPHOBIA [None]
  - PUPIL FIXED [None]
  - VISION BLURRED [None]
  - VOMITING [None]
